FAERS Safety Report 14539087 (Version 2)
Quarter: 2018Q1

REPORT INFORMATION
  Report Type: Report from Study
  Country: US (occurrence: GB)
  Receive Date: 20180216
  Receipt Date: 20180307
  Transmission Date: 20180509
  Serious: Yes (Other)
  Sender: FDA-Public Use
  Company Number: GB-TEVA-2018-GB-858003

PATIENT
  Age: 58 Year
  Sex: Male
  Weight: 89.9 kg

DRUGS (10)
  1. TEMOZOLOMIDE. [Suspect]
     Active Substance: TEMOZOLOMIDE
     Indication: GLIOBLASTOMA MULTIFORME
     Dosage: 75 MG/M2 DAILY;
     Route: 048
     Dates: start: 20170912, end: 20171009
  2. DEXAMETHASONE. [Concomitant]
     Active Substance: DEXAMETHASONE
     Dosage: 2 MG, QOD
     Route: 048
     Dates: start: 20171016
  3. CYCLIZINE HYDROCHLORIDE [Concomitant]
     Active Substance: CYCLIZINE HYDROCHLORIDE
     Dosage: 50 MILLIGRAM DAILY; TOTAL DAILY DOSE 50 MG, PRN
     Route: 048
     Dates: start: 20171031
  4. LEVETIRACETAM. [Concomitant]
     Active Substance: LEVETIRACETAM
     Indication: CONVULSION PROPHYLAXIS
     Dosage: 500 MILLIGRAM DAILY;
     Route: 048
     Dates: start: 20170712
  5. MAXIDEX [Concomitant]
     Active Substance: DEXAMETHASONE
     Indication: PROPHYLAXIS
     Route: 065
  6. CYCLIZINE HYDROCHLORIDE [Concomitant]
     Active Substance: CYCLIZINE HYDROCHLORIDE
     Indication: NAUSEA
     Dosage: 150 MILLIGRAM DAILY;
     Route: 048
     Dates: start: 20171006, end: 20171030
  7. LANSOPRAZOLE. [Concomitant]
     Active Substance: LANSOPRAZOLE
     Indication: PROPHYLAXIS
     Dosage: 30 MILLIGRAM DAILY;
     Route: 048
     Dates: start: 20171006, end: 20171030
  8. DEXAMETHASONE. [Concomitant]
     Active Substance: DEXAMETHASONE
     Indication: NAUSEA
     Dosage: 2 MILLIGRAM DAILY;
     Route: 048
     Dates: start: 20171006, end: 20171016
  9. BACTRIM [Concomitant]
     Active Substance: SULFAMETHOXAZOLE\TRIMETHOPRIM
     Indication: ANTIFUNGAL PROPHYLAXIS
     Dosage: 480 MG, BID ON MONDAY, WEDNESDAY, FRIDAY
     Route: 048
     Dates: start: 20170911, end: 20171030
  10. MAXIDEX [Concomitant]
     Active Substance: DEXAMETHASONE
     Indication: OCULAR TOXICITY
     Dosage: 1-2 DROPS; FOR 7 DAYS, BEGINNING 2 DAYS PRIOR TO EACH STUDY DRUG ADMINISTRATION (3 IN 1 D)
     Route: 047

REACTIONS (7)
  - Corneal dystrophy [Unknown]
  - Keratopathy [Unknown]
  - Urinary tract disorder [Recovered/Resolved]
  - Renal disorder [Recovered/Resolved]
  - Glomerular filtration rate decreased [Recovered/Resolved]
  - Blood creatinine increased [Unknown]
  - Blood creatinine increased [Unknown]

NARRATIVE: CASE EVENT DATE: 20171009
